FAERS Safety Report 15945601 (Version 1)
Quarter: 2019Q1

REPORT INFORMATION
  Report Type: Spontaneous
  Country: DE (occurrence: DE)
  Receive Date: 20190211
  Receipt Date: 20190211
  Transmission Date: 20190417
  Serious: Yes (Hospitalization, Other)
  Sender: FDA-Public Use
  Company Number: DE-ACCORD-105682

PATIENT
  Age: 70 Year
  Sex: Female
  Weight: 75 kg

DRUGS (31)
  1. ALOXI [Concomitant]
     Active Substance: PALONOSETRON HYDROCHLORIDE
     Indication: NAUSEA
     Dosage: BEFORE CHEMOTHERAPY FROM CYCLE 10
     Route: 042
     Dates: start: 20140224, end: 20140708
  2. METOCLOPRAMIDE. [Concomitant]
     Active Substance: METOCLOPRAMIDE
     Dosage: AS REQUIRED
     Route: 048
     Dates: start: 20140210
  3. PREDNISOLONE. [Concomitant]
     Active Substance: PREDNISOLONE
     Indication: FIBROMYALGIA
     Dosage: DAILY DOSE: 5 MG MILLGRAM(S) EVERY DAYS
     Route: 048
     Dates: start: 20130902
  4. IRINOTECAN [Suspect]
     Active Substance: IRINOTECAN
     Indication: COLON CANCER
     Dosage: 247.7 - 326 MG 216 - 326 MG
     Route: 042
     Dates: start: 20131007, end: 20140708
  5. DEXAMETHASONE. [Concomitant]
     Active Substance: DEXAMETHASONE
     Indication: VOMITING
  6. DICLOFENAC [Concomitant]
     Active Substance: DICLOFENAC
     Dosage: AS NEEDED
     Route: 048
  7. SIMVASTATIN. [Concomitant]
     Active Substance: SIMVASTATIN
     Indication: HYPERCHOLESTEROLAEMIA
     Dosage: DOSE: 1
     Route: 048
     Dates: start: 20130902, end: 20140414
  8. FORTECORTIN [Concomitant]
     Active Substance: DEXAMETHASONE
     Indication: NAUSEA
     Dosage: BEFORE CHEMOTHERAPY
     Route: 042
  9. ASPIRIN. [Concomitant]
     Active Substance: ASPIRIN
     Indication: CORONARY ARTERY DISEASE
     Dosage: DAILY DOSE: 100 MG MILLGRAM(S) EVERY DAYS
     Route: 048
     Dates: start: 20130902
  10. VERGENTAN [Concomitant]
     Active Substance: ALIZAPRIDE HYDROCHLORIDE
     Indication: NAUSEA
     Dosage: ON D2 OF EACH CYCLE
     Route: 048
     Dates: start: 20131007
  11. ALLOPURINOL. [Concomitant]
     Active Substance: ALLOPURINOL
     Indication: HYPERURICAEMIA
     Dosage: 1
     Route: 048
     Dates: start: 20140902
  12. IMODIUM [Concomitant]
     Active Substance: LOPERAMIDE HYDROCHLORIDE
     Indication: DIARRHOEA
     Route: 054
  13. FOSFOMYCIN [Concomitant]
     Active Substance: FOSFOMYCIN
     Indication: CYSTITIS
     Route: 048
  14. CIPROFLOXACIN. [Concomitant]
     Active Substance: CIPROFLOXACIN
     Indication: CYSTITIS
     Dosage: DAILY DOSE: 500 MG MILLGRAM(S) EVERY DAYS
     Route: 042
     Dates: start: 20140414, end: 20140419
  15. ALOXI [Concomitant]
     Active Substance: PALONOSETRON HYDROCHLORIDE
     Indication: VOMITING
  16. AVASTIN [Suspect]
     Active Substance: BEVACIZUMAB
     Indication: COLON CANCER
     Dosage: 370 - 325 MG
     Route: 042
     Dates: start: 20131007, end: 20140708
  17. KEVATRIL [Concomitant]
     Active Substance: GRANISETRON HYDROCHLORIDE
     Indication: NAUSEA
     Dosage: BEFORE CHEMOTHERAPY
     Route: 042
     Dates: start: 20131007
  18. ATROPINE. [Concomitant]
     Active Substance: ATROPINE
     Indication: CHOLINERGIC SYNDROME
     Dosage: BEFORE IRINOTECAN
     Route: 058
     Dates: start: 20131007
  19. ZOFRAN [Concomitant]
     Active Substance: ONDANSETRON HYDROCHLORIDE
     Indication: NAUSEA
     Dosage: MAX, AS REQUIRED
     Route: 048
     Dates: start: 20131216
  20. FORTECORTIN [Concomitant]
     Active Substance: DEXAMETHASONE
     Indication: VOMITING
     Dosage: DAY 2 TO DAY 5 AFTER CHEMOTHERAPY
     Route: 048
     Dates: start: 20140414
  21. FORTIMEL [Concomitant]
     Active Substance: DIETARY SUPPLEMENT
     Indication: WEIGHT DECREASED
     Dosage: DAILY DOSE: 1 DF DOSAGE FORM EVERY DAYS
     Route: 048
     Dates: start: 20140424
  22. FLUOROURACIL. [Suspect]
     Active Substance: FLUOROURACIL
     Indication: COLON CANCER
     Dosage: 113.8 MG ON 14-APR-2014 BY INTRAVENOUS BOLUS,4344 MG AND 724 MG FROM 07-OCT-2013 TO 25-FEB-2014,
     Route: 041
     Dates: start: 20140310, end: 20140709
  23. FOLINIC ACID [Suspect]
     Active Substance: LEUCOVORIN
     Indication: COLON CANCER
     Dosage: 724 - 688 MG
     Route: 042
     Dates: start: 20131007, end: 20140708
  24. PROPAFENONE. [Concomitant]
     Active Substance: PROPAFENONE
     Indication: TACHYARRHYTHMIA
     Dosage: DAILY DOSE: 300 MG MILLGRAM(S) EVERY DAYS
     Route: 048
     Dates: start: 20130902
  25. DEXAMETHASONE. [Concomitant]
     Active Substance: DEXAMETHASONE
     Indication: NAUSEA
     Dosage: DAILY DOSE: 8 MG MILLGRAM(S) EVERY DAYS??ALSO RECEIVED UNK DOSE ON UNK DATE
     Route: 048
     Dates: start: 20140224, end: 20140228
  26. PREDNISOLONE. [Concomitant]
     Active Substance: PREDNISOLONE
     Indication: WEIGHT DECREASED
     Route: 048
  27. BISOPROLOL [Concomitant]
     Active Substance: BISOPROLOL
     Indication: HYPERTENSION
     Dosage: DAILY DOSE: 2.5 MG MILLGRAM(S) EVERY DAYS
     Route: 048
     Dates: start: 20130101
  28. LYRICA [Concomitant]
     Active Substance: PREGABALIN
     Indication: PAIN
     Dosage: DAILY DOSE: 100 MG MILLGRAM(S) EVERY DAYS
     Route: 048
     Dates: start: 20141128
  29. VOMEX [Concomitant]
     Active Substance: DIMENHYDRINATE
     Indication: NAUSEA
     Route: 054
  30. ASPIRIN. [Concomitant]
     Active Substance: ASPIRIN
     Indication: ATRIAL FIBRILLATION
  31. GENERIC COMPONENT(S) NOT KNOWN [Concomitant]
     Active Substance: UNSPECIFIED INGREDIENT
     Dosage: AS NEEDED
     Route: 054

REACTIONS (9)
  - General physical health deterioration [Recovered/Resolved]
  - Vomiting [Recovered/Resolved]
  - Nausea [Recovered/Resolved]
  - Upper gastrointestinal haemorrhage [Recovered/Resolved]
  - Spinal pain [Unknown]
  - Duodenal ulcer repair [Unknown]
  - Helicobacter gastritis [Unknown]
  - Malignant neoplasm progression [Not Recovered/Not Resolved]
  - Decreased appetite [Recovered/Resolved]

NARRATIVE: CASE EVENT DATE: 20140506
